FAERS Safety Report 22082089 (Version 4)
Quarter: 2023Q1

REPORT INFORMATION
  Report Type: Report from Study
  Country: CA (occurrence: CA)
  Receive Date: 20230310
  Receipt Date: 20230323
  Transmission Date: 20230418
  Serious: Yes (Hospitalization)
  Sender: FDA-Public Use
  Company Number: CA-BIOGEN-2023BI01190717

PATIENT
  Sex: Female

DRUGS (2)
  1. SPINRAZA [Suspect]
     Active Substance: NUSINERSEN
     Indication: Spinal muscular atrophy
     Dosage: DAY 0,14,28,58 AND EVERY 4 MONTHS THEREAFTER
     Route: 050
     Dates: start: 20170428
  2. SPINRAZA [Suspect]
     Active Substance: NUSINERSEN
     Dosage: DAY 0,14,28,58 AND EVERY 4 MONTHS THEREAFTER
     Route: 050
     Dates: start: 20170828

REACTIONS (10)
  - Respiratory syncytial virus infection [Unknown]
  - Scoliosis [Unknown]
  - Gastric disorder [Unknown]
  - Fatigue [Unknown]
  - Muscular weakness [Unknown]
  - Fluid intake reduced [Unknown]
  - Hypophagia [Unknown]
  - Anaesthetic complication [Unknown]
  - Asthenia [Unknown]
  - Influenza [Unknown]
